FAERS Safety Report 24112825 (Version 1)
Quarter: 2024Q3

REPORT INFORMATION
  Report Type: Spontaneous
  Country: FR (occurrence: FR)
  Receive Date: 20240719
  Receipt Date: 20240719
  Transmission Date: 20241016
  Serious: Yes (Death)
  Sender: PFIZER
  Company Number: FR-ROCHE-3492661

PATIENT
  Age: 60 Year
  Sex: Female
  Weight: 51 kg

DRUGS (7)
  1. PALBOCICLIB [Suspect]
     Active Substance: PALBOCICLIB
     Indication: Ovarian epithelial cancer
     Dosage: 125 MG, 1X/DAY
     Route: 048
     Dates: start: 20231215
  2. INAVOLISIB [Suspect]
     Active Substance: INAVOLISIB
     Indication: Ovarian epithelial cancer
     Dosage: 9 MG, 1X/DAY
     Route: 048
     Dates: start: 20231215
  3. GLYCERIN\MINERAL OIL\PETROLATUM [Concomitant]
     Active Substance: GLYCERIN\MINERAL OIL\PETROLATUM
     Indication: Xerosis
     Dosage: UNK FREQ:0.5 D;
     Route: 061
     Dates: start: 20240105
  4. OMEPRAZOLE [Concomitant]
     Active Substance: OMEPRAZOLE
     Indication: Gastrooesophageal reflux disease
     Dosage: 20 MG, 1X/DAY
     Route: 048
  5. ELIQUIS [Concomitant]
     Active Substance: APIXABAN
     Indication: Thrombosis
     Dosage: 2.5 MG ; FREQ:0.5 D;
     Route: 048
  6. CHOLECALCIFEROL [Concomitant]
     Active Substance: CHOLECALCIFEROL
     Dosage: 50000 IU, MONTHLY
     Route: 048
  7. OXYBUTYNIN [Concomitant]
     Active Substance: OXYBUTYNIN\OXYBUTYNIN CHLORIDE
     Indication: Dysuria
     Dosage: FREQ:0.5 D;
     Route: 048
     Dates: start: 20231229

REACTIONS (3)
  - Death [Fatal]
  - Mucosal inflammation [Recovered/Resolved]
  - Off label use [Unknown]

NARRATIVE: CASE EVENT DATE: 20231215
